FAERS Safety Report 12676711 (Version 1)
Quarter: 2016Q3

REPORT INFORMATION
  Report Type: Spontaneous
  Country: US (occurrence: US)
  Receive Date: 20160823
  Receipt Date: 20160823
  Transmission Date: 20161109
  Serious: No
  Sender: FDA-Public Use
  Company Number: US-FRI-1000082568

PATIENT
  Sex: Female

DRUGS (2)
  1. SAPHRIS [Suspect]
     Active Substance: ASENAPINE MALEATE
     Indication: DEPRESSION
  2. SAPHRIS [Suspect]
     Active Substance: ASENAPINE MALEATE
     Indication: INSOMNIA

REACTIONS (2)
  - Euphoric mood [Unknown]
  - Off label use [Recovered/Resolved]
